FAERS Safety Report 20779114 (Version 3)
Quarter: 2022Q2

REPORT INFORMATION
  Report Type: Spontaneous
  Country: GB (occurrence: GB)
  Receive Date: 20220503
  Receipt Date: 20220608
  Transmission Date: 20220721
  Serious: Yes (Death, Other)
  Sender: FDA-Public Use
  Company Number: GB-MHRA-MED-202204271053270160-POCVU

PATIENT
  Age: 67 Year
  Sex: Male

DRUGS (4)
  1. AXITINIB [Suspect]
     Active Substance: AXITINIB
     Dosage: 5MG INCREASED TO 7MG FROM THE 1ST TO THE 2ND INFUSION; ;
     Dates: start: 20210209
  2. AXITINIB [Suspect]
     Active Substance: AXITINIB
     Dosage: 5MG INCREASED TO 7MG FROM THE 1ST TO THE 2ND INFUSION
     Dates: start: 20210308
  3. AVELUMAB [Suspect]
     Active Substance: AVELUMAB
     Dosage: 5 MG
     Dates: start: 20210209
  4. AVELUMAB [Suspect]
     Active Substance: AVELUMAB
     Dosage: 7 MG
     Dates: start: 20210308

REACTIONS (8)
  - Death of relative [Fatal]
  - Haemorrhage [Fatal]
  - Syncope [Fatal]
  - Respiratory arrest [Fatal]
  - Rib fracture [Fatal]
  - Neoplasm progression [Fatal]
  - Malaise [Fatal]
  - Medication error [Fatal]

NARRATIVE: CASE EVENT DATE: 20210209
